FAERS Safety Report 5470738-6 (Version None)
Quarter: 2007Q3

REPORT INFORMATION
  Report Type: 
  Country: None (occurrence: None)
  Receive Date: 20070928
  Receipt Date: 20070920
  Transmission Date: 20080115
  Serious: Yes (Other)
  Sender: FDA-Public Use
  Company Number: PT-JNJFOC-20070904801

PATIENT
  Sex: Female
  Weight: 20 kg

DRUGS (2)
  1. CONCERTA [Suspect]
     Indication: DRUG USE FOR UNKNOWN INDICATION
     Route: 048
  2. RISPERIDONE [Concomitant]

REACTIONS (2)
  - HEPATITIS TOXIC [None]
  - TRANSAMINASES INCREASED [None]
